FAERS Safety Report 5689292-9 (Version None)
Quarter: 2008Q1

REPORT INFORMATION
  Report Type: 
  Country: None (occurrence: None)
  Receive Date: 20080331
  Receipt Date: 20080325
  Transmission Date: 20080703
  Serious: Yes (Other)
  Sender: FDA-Public Use
  Company Number: US-PFIZER INC-2008019109

PATIENT
  Sex: Male
  Weight: 72.6 kg

DRUGS (1)
  1. VIAGRA [Suspect]
     Dates: start: 20070101, end: 20070101

REACTIONS (2)
  - DYSTONIA [None]
  - MUSCLE SPASMS [None]
